FAERS Safety Report 5885438-8 (Version None)
Quarter: 2008Q3

REPORT INFORMATION
  Report Type: 
  Country: None (occurrence: None)
  Receive Date: 20080916
  Receipt Date: 20080905
  Transmission Date: 20090109
  Serious: Yes (Hospitalization, Other)
  Sender: FDA-Public Use
  Company Number: JP-SANOFI-SYNTHELABO-A01200806585

PATIENT
  Age: 43 Year
  Sex: Female

DRUGS (4)
  1. ISOVORIN [Concomitant]
     Dosage: UNK
     Route: 041
  2. ELPLAT [Suspect]
     Indication: COLON CANCER
     Dosage: UNK
     Route: 041
  3. DECADRON SRC [Concomitant]
     Indication: PREMEDICATION
     Dosage: UNK
     Route: 042
  4. FLUOROURACIL [Concomitant]
     Dosage: BOLUS THEN INFUSION UNK
     Route: 042

REACTIONS (1)
  - REVERSIBLE POSTERIOR LEUKOENCEPHALOPATHY SYNDROME [None]
